FAERS Safety Report 8918156 (Version 1)
Quarter: 2012Q4

REPORT INFORMATION
  Report Type: 
  Country: ES (occurrence: ES)
  Receive Date: 20121120
  Receipt Date: 20121120
  Transmission Date: 20130627
  Serious: Yes (Life-Threatening)
  Sender: FDA-Public Use
  Company Number: ES-JNJFOC-20121104164

PATIENT
  Age: 54 Year
  Sex: Male

DRUGS (1)
  1. CONCERTA [Suspect]
     Indication: OBSESSIVE-COMPULSIVE DISORDER
     Route: 048
     Dates: start: 201110, end: 20120501

REACTIONS (2)
  - Ischaemic stroke [Unknown]
  - Off label use [Recovered/Resolved]
